FAERS Safety Report 5493080-6 (Version None)
Quarter: 2007Q4

REPORT INFORMATION
  Report Type: 
  Country: None (occurrence: None)
  Receive Date: 20071019
  Receipt Date: 20071012
  Transmission Date: 20080405
  Serious: Yes (Death)
  Sender: FDA-Public Use
  Company Number: 430005N07USA

PATIENT
  Age: 63 Year
  Sex: Male

DRUGS (12)
  1. NOVANTRONE [Suspect]
     Dosage: 12;12.2;12.5;12.1;12.4;12.2;12.1
     Dates: start: 20010109
  2. NOVANTRONE [Suspect]
     Dosage: 12;12.2;12.5;12.1;12.4;12.2;12.1
     Dates: start: 20010404
  3. NOVANTRONE [Suspect]
     Dosage: 12;12.2;12.5;12.1;12.4;12.2;12.1
     Dates: start: 20010711
  4. NOVANTRONE [Suspect]
     Dosage: 12;12.2;12.5;12.1;12.4;12.2;12.1
     Dates: start: 20011003
  5. NOVANTRONE [Suspect]
     Dosage: 12;12.2;12.5;12.1;12.4;12.2;12.1
     Dates: start: 20020109
  6. NOVANTRONE [Suspect]
     Dosage: 12;12.2;12.5;12.1;12.4;12.2;12.1
     Dates: start: 20020417
  7. NOVANTRONE [Suspect]
     Dosage: 12;12.2;12.5;12.1;12.4;12.2;12.1
     Dates: start: 20020717
  8. NOVANTRONE [Suspect]
     Dosage: 12;12.2;12.5;12.1;12.4;12.2;12.1
     Dates: start: 20021022
  9. NOVANTRONE [Suspect]
     Dosage: 12;12.2;12.5;12.1;12.4;12.2;12.1
     Dates: start: 20030122
  10. AZATHIOPRINE [Concomitant]
  11. INTERFERON BETA [Concomitant]
  12. PREDNISONE/00044701/ [Concomitant]

REACTIONS (1)
  - EJECTION FRACTION DECREASED [None]
